FAERS Safety Report 6901822-5 (Version None)
Quarter: 2010Q3

REPORT INFORMATION
  Report Type: 
  Country: None (occurrence: None)
  Receive Date: 20100803
  Receipt Date: 20080311
  Transmission Date: 20110219
  Serious: No
  Sender: FDA-Public Use
  Company Number: US-PFIZER INC-2008024189

PATIENT

DRUGS (2)
  1. LYRICA [Suspect]
     Indication: PAIN IN EXTREMITY
  2. ZOLPIDEM TARTRATE [Suspect]

REACTIONS (3)
  - DYSPNOEA AT REST [None]
  - INSOMNIA [None]
  - SOMNOLENCE [None]
